FAERS Safety Report 15383902 (Version 15)
Quarter: 2019Q2

REPORT INFORMATION
  Report Type: Report from Study
  Country: None (occurrence: IL)
  Receive Date: 20180914
  Receipt Date: 20190419
  Transmission Date: 20190711
  Serious: Yes (Life-Threatening, Hospitalization, Other)
  Sender: FDA-Public Use
  Company Number: IL-ABBVIE-17P-082-1962814-00

PATIENT
  Age: 81 Year
  Sex: Male

DRUGS (5)
  1. DUODOPA [Suspect]
     Active Substance: CARBIDOPA\LEVODOPA
     Dosage: CMD: 10 ML, CD- 3.5 ML/ HOUR, CED- 2.0 ML
     Route: 050
  2. DUODOPA [Suspect]
     Active Substance: CARBIDOPA\LEVODOPA
     Indication: PARKINSON^S DISEASE
     Dosage: CMD: 11 ML, CD: 3.8ML/HOUR, CED: 1.5 ML
     Route: 050
  3. DUODOPA [Suspect]
     Active Substance: CARBIDOPA\LEVODOPA
     Dosage: CURRENT: MD 10.5ML, CD 3.5ML/HOUR, ED 2ML
     Route: 050
  4. DUODOPA [Suspect]
     Active Substance: CARBIDOPA\LEVODOPA
     Dosage: MD: 10 ML, CD- 3.5 ML/ HOUR, ED- 2.0 ML
     Route: 050
  5. PRADAXA [Concomitant]
     Active Substance: DABIGATRAN ETEXILATE MESYLATE
     Indication: PRODUCT USED FOR UNKNOWN INDICATION
     Route: 065

REACTIONS (35)
  - Constipation [Unknown]
  - Cerebral haemorrhage [Not Recovered/Not Resolved]
  - Haematoma [Unknown]
  - Stoma site odour [Not Recovered/Not Resolved]
  - Tachycardia [Unknown]
  - Somnolence [Not Recovered/Not Resolved]
  - Atrial fibrillation [Unknown]
  - Decubitus ulcer [Unknown]
  - Septic shock [Unknown]
  - Device dislocation [Unknown]
  - Incorrect route of product administration [Recovered/Resolved]
  - Fluid intake reduced [Unknown]
  - Stoma site erythema [Unknown]
  - Atrial fibrillation [Unknown]
  - Altered state of consciousness [Recovering/Resolving]
  - Stoma site haemorrhage [Not Recovered/Not Resolved]
  - Stoma site infection [Not Recovered/Not Resolved]
  - Stoma site hypergranulation [Unknown]
  - General physical health deterioration [Unknown]
  - Unresponsive to stimuli [Unknown]
  - Urinary tract infection [Unknown]
  - Systemic infection [Unknown]
  - Device connection issue [Recovered/Resolved]
  - Cognitive disorder [Recovering/Resolving]
  - Gastrointestinal stoma complication [Unknown]
  - Fall [Not Recovered/Not Resolved]
  - Head injury [Not Recovered/Not Resolved]
  - Pyrexia [Unknown]
  - Stoma site discharge [Not Recovered/Not Resolved]
  - Device issue [Recovered/Resolved]
  - Pneumonia [Unknown]
  - Oxygen saturation decreased [Unknown]
  - Device occlusion [Recovered/Resolved]
  - Incorrect route of product administration [Recovered/Resolved]
  - Device occlusion [Recovered/Resolved]

NARRATIVE: CASE EVENT DATE: 20170427
